FAERS Safety Report 22639783 (Version 1)
Quarter: 2023Q2

REPORT INFORMATION
  Report Type: Report from Study
  Country: US (occurrence: US)
  Receive Date: 20230626
  Receipt Date: 20230626
  Transmission Date: 20230722
  Serious: No
  Sender: FDA-Public Use
  Company Number: US-PFIZER INC-US-GBT-017309

PATIENT
  Age: 39 Year
  Sex: Female

DRUGS (3)
  1. OXBRYTA [Suspect]
     Active Substance: VOXELOTOR
     Indication: Sickle cell disease
     Dosage: 1500 MG, 1X/DAY
     Route: 048
  2. OXBRYTA [Suspect]
     Active Substance: VOXELOTOR
     Dosage: 1500 MG, 1X/DAY, [FREQUENCY: TAKE 3 TABLETS BY MOUTH 1 TIME A DAY]
     Route: 048
     Dates: start: 202206
  3. HYDROXYUREA [Concomitant]
     Active Substance: HYDROXYUREA
     Dosage: UNK

REACTIONS (2)
  - Diarrhoea [Recovered/Resolved]
  - Haemoglobin decreased [Unknown]
